FAERS Safety Report 4940152-8 (Version None)
Quarter: 2006Q1

REPORT INFORMATION
  Report Type: 
  Country: None (occurrence: None)
  Receive Date: 20060310
  Receipt Date: 20060213
  Transmission Date: 20060701
  Serious: Yes (Other)
  Sender: FDA-Public Use
  Company Number: 2006UW02441

PATIENT
  Age: 67 Year
  Sex: Male
  Weight: 65.8 kg

DRUGS (22)
  1. RHINOCORT [Suspect]
     Indication: POSTNASAL DRIP
     Route: 045
     Dates: start: 20060201, end: 20060201
  2. RHINOCORT [Suspect]
     Indication: NASAL CONGESTION
     Route: 045
     Dates: start: 20060201, end: 20060201
  3. RHINOCORT [Suspect]
     Indication: RHINITIS ALLERGIC
     Route: 045
     Dates: start: 20060201, end: 20060201
  4. PROCARDIA XL [Concomitant]
     Indication: HYPERTENSION
     Dosage: 90 XL
  5. ATENOLOL [Concomitant]
     Indication: BLOOD PRESSURE
     Route: 048
  6. ATENOLOL [Concomitant]
     Indication: HEART RATE
     Route: 048
  7. UROXATRAL [Concomitant]
     Indication: UROGENITAL DISORDER
  8. UROXATRAL [Concomitant]
     Indication: MICTURITION DISORDER
  9. LIPITOR [Concomitant]
     Indication: BLOOD CHOLESTEROL INCREASED
     Dosage: ONE HALF TABLET
  10. NEURONTIN [Concomitant]
     Indication: NERVE INJURY
  11. FLEXERIL [Concomitant]
     Indication: NERVE INJURY
  12. COSOPT [Concomitant]
     Indication: GLAUCOMA
     Route: 047
  13. LEVOTHYROXIDE [Concomitant]
     Indication: HYPOTHYROIDISM
  14. SEROQUEL [Concomitant]
     Indication: BIPOLAR DISORDER
     Route: 048
  15. SEROQUEL [Concomitant]
     Indication: SLEEP DISORDER
     Route: 048
  16. LITHIUM [Concomitant]
     Indication: BIPOLAR DISORDER
  17. ECOTRIN [Concomitant]
     Indication: PROPHYLAXIS
  18. MULTI-VITAMIN [Concomitant]
  19. ALCON [Concomitant]
     Indication: DRY EYE
  20. OSTEO BI-FLEX [Concomitant]
     Indication: ARTHRITIS
     Dosage: 2 TABLETS
  21. LASIX [Concomitant]
     Indication: FLUID RETENTION
  22. MOBIC [Concomitant]
     Indication: ARTHRITIS

REACTIONS (6)
  - BLOOD PRESSURE INCREASED [None]
  - DIZZINESS [None]
  - DRY MOUTH [None]
  - LUNG DISORDER [None]
  - NASAL DISCOMFORT [None]
  - THROAT IRRITATION [None]
